FAERS Safety Report 5039016-3 (Version None)
Quarter: 2006Q2

REPORT INFORMATION
  Report Type: 
  Country: None (occurrence: None)
  Receive Date: 20060601
  Receipt Date: 20060221
  Transmission Date: 20061013
  Serious: No
  Sender: FDA-Public Use
  Company Number: 2005PV001415

PATIENT
  Age: 58 Year
  Sex: Male
  Weight: 92.9874 kg

DRUGS (21)
  1. BYETTA [Suspect]
     Indication: DIABETES MELLITUS NON-INSULIN-DEPENDENT
     Dosage: SEE IMAGE
     Route: 058
     Dates: start: 20050819, end: 20050916
  2. BYETTA [Suspect]
     Indication: DIABETES MELLITUS NON-INSULIN-DEPENDENT
     Dosage: SEE IMAGE
     Route: 058
     Dates: end: 20060201
  3. BYETTA [Suspect]
     Indication: DIABETES MELLITUS NON-INSULIN-DEPENDENT
     Dosage: SEE IMAGE
     Route: 058
  4. BYETTA [Suspect]
     Indication: DIABETES MELLITUS NON-INSULIN-DEPENDENT
     Dosage: SEE IMAGE
     Route: 058
     Dates: start: 20050917
  5. BYETTA [Suspect]
     Indication: DIABETES MELLITUS NON-INSULIN-DEPENDENT
     Dosage: SEE IMAGE
     Route: 058
     Dates: start: 20060201
  6. PREVACID [Concomitant]
  7. ZOCOR [Concomitant]
  8. COZAAR [Concomitant]
  9. VITAMIN D [Concomitant]
  10. FLONASE [Concomitant]
  11. IPRATROPIUM BROMIDE [Concomitant]
  12. LEXAPRO [Concomitant]
  13. CLONAZEPAM [Concomitant]
  14. RESTASIS [Concomitant]
  15. ASPIRIN [Concomitant]
  16. METFORMIN [Concomitant]
  17. AVANDIA [Concomitant]
  18. GLIPIZIDE [Concomitant]
  19. METFORMIN [Concomitant]
  20. AVANDIA [Concomitant]
  21. GLUCOPHAGE [Concomitant]

REACTIONS (9)
  - BLOOD GLUCOSE DECREASED [None]
  - BLOOD GLUCOSE INCREASED [None]
  - DRUG EFFECT DECREASED [None]
  - FEELING JITTERY [None]
  - GASTROOESOPHAGEAL REFLUX DISEASE [None]
  - NAUSEA [None]
  - SINUSITIS [None]
  - SLUGGISHNESS [None]
  - WEIGHT DECREASED [None]
